FAERS Safety Report 7650935-1 (Version None)
Quarter: 2011Q3

REPORT INFORMATION
  Report Type: 
  Country: None (occurrence: None)
  Receive Date: 20110802
  Receipt Date: 20110726
  Transmission Date: 20111222
  Serious: Yes (Other)
  Sender: FDA-Public Use
  Company Number: NL-PFIZER INC-2011170474

PATIENT
  Age: 58 Year
  Sex: Female
  Weight: 147 kg

DRUGS (15)
  1. CLINDAMYCIN HCL [Suspect]
     Indication: WOUND INFECTION
     Dosage: 600 MG, 3X/DAY
     Dates: start: 20110713, end: 20110716
  2. SELOKEEN [Concomitant]
     Dosage: 50 MG, 2X/DAY
     Dates: start: 20110714, end: 20110715
  3. LASIX [Concomitant]
     Dosage: 120 MG, UNK
     Dates: start: 20110715, end: 20110716
  4. CIPROFLAXACIN [Suspect]
     Indication: WOUND INFECTION
     Dosage: 400 MG, 2X/DAY
     Dates: start: 20110713, end: 20110716
  5. THIAMINE [Concomitant]
  6. BERODUAL [Concomitant]
  7. ALLOPURINOL [Concomitant]
     Dosage: 100 MG, UNK
  8. METFORMIN [Concomitant]
     Dosage: 850 MG, 1X/DAY
  9. FRAXIPARINE [Concomitant]
     Dosage: 0.6 ML, UNK
  10. SYMORON [Concomitant]
     Dosage: 40 MG, 1X/DAY
  11. MODALIM [Concomitant]
     Dosage: 100 MG, UNK
  12. SPIRIVA [Concomitant]
     Dosage: 18 UG, UNK
  13. PANTOPRAZOLE [Concomitant]
     Dosage: 40 MG, 2X/DAY
  14. SPIRONOLACTONE [Concomitant]
     Dosage: 100 MG, UNK
  15. DIAMOX SRC [Concomitant]
     Dosage: 250 MG, 2X/DAY

REACTIONS (2)
  - HYPOTENSION [None]
  - HEPATIC NECROSIS [None]
